FAERS Safety Report 11269963 (Version 1)
Quarter: 2015Q3

REPORT INFORMATION
  Report Type: Spontaneous
  Country: US (occurrence: None)
  Receive Date: 20150713
  Receipt Date: 20150713
  Transmission Date: 20151125
  Serious: Yes (Hospitalization)
  Sender: FDA-Public Use
  Company Number: None

PATIENT
  Age: 56 Year
  Sex: Male
  Weight: 57.7 kg

DRUGS (1)
  1. WARFARIN [Suspect]
     Active Substance: WARFARIN
     Indication: ATRIAL FIBRILLATION
     Dosage: MG   PO?~11/07/2014 THRU N/A
     Route: 048
     Dates: start: 20141107

REACTIONS (3)
  - Gastrointestinal haemorrhage [None]
  - Alcohol withdrawal syndrome [None]
  - Gastric haemorrhage [None]

NARRATIVE: CASE EVENT DATE: 20150604
